FAERS Safety Report 17750581 (Version 2)
Quarter: 2020Q4

REPORT INFORMATION
  Report Type: Spontaneous
  Country: US (occurrence: US)
  Receive Date: 20200506
  Receipt Date: 20201009
  Transmission Date: 20210113
  Serious: Yes (Hospitalization, Other)
  Sender: FDA-Public Use
  Company Number: US-LUPIN PHARMACEUTICALS INC.-2020-01981

PATIENT
  Age: 44 Year
  Sex: Female

DRUGS (1)
  1. FLUOXETINE [Suspect]
     Active Substance: FLUOXETINE HYDROCHLORIDE
     Indication: PRODUCT USED FOR UNKNOWN INDICATION
     Dosage: UNK (EMPTY BOTTLE)
     Route: 065

REACTIONS (4)
  - Overdose [Unknown]
  - Reversible cerebral vasoconstriction syndrome [Recovering/Resolving]
  - Cerebral infarction [Recovering/Resolving]
  - Cerebrovascular accident [Recovering/Resolving]
